FAERS Safety Report 10156211 (Version 2)
Quarter: 2014Q2

REPORT INFORMATION
  Report Type: Spontaneous
  Country: CA (occurrence: CA)
  Receive Date: 20140507
  Receipt Date: 20140507
  Transmission Date: 20141212
  Serious: Yes (Life-Threatening, Other)
  Sender: FDA-Public Use
  Company Number: CA-ROCHE-1386202

PATIENT
  Age: 48 Year
  Sex: Female

DRUGS (3)
  1. ACTIVASE [Suspect]
     Indication: CEREBROVASCULAR ACCIDENT
     Dosage: BOLUS DOSE OF 7.6 MG OVER 1 MIN. FOLLOWED BY 67.9 MG OVER 1 MIN.
     Route: 042
     Dates: start: 20140313
  2. BENADRYL (CANADA) [Concomitant]
  3. LANSOPRAZOLE [Concomitant]

REACTIONS (3)
  - Angioedema [Recovering/Resolving]
  - Speech disorder [Unknown]
  - Dysphagia [Unknown]
